FAERS Safety Report 6177519-9 (Version None)
Quarter: 2009Q2

REPORT INFORMATION
  Report Type: 
  Country: None (occurrence: None)
  Receive Date: 20090504
  Receipt Date: 20090429
  Transmission Date: 20091009
  Serious: Yes (Death)
  Sender: FDA-Public Use
  Company Number: GR-ABBOTT-09P-066-0570566-00

PATIENT
  Age: 68 Year
  Sex: Male

DRUGS (11)
  1. ZEMPLAR [Suspect]
     Indication: HYPERPARATHYROIDISM SECONDARY
     Route: 042
     Dates: start: 20090122
  2. EPREX 40000 [Concomitant]
     Indication: DRUG USE FOR UNKNOWN INDICATION
  3. FERROVINE [Concomitant]
     Indication: DRUG USE FOR UNKNOWN INDICATION
  4. SUPERAMIN [Concomitant]
     Indication: DRUG USE FOR UNKNOWN INDICATION
  5. NEUROBION [Concomitant]
     Indication: DRUG USE FOR UNKNOWN INDICATION
  6. TITRALAC [Concomitant]
     Indication: DRUG USE FOR UNKNOWN INDICATION
  7. TRIATEC PLUS [Concomitant]
     Indication: DRUG USE FOR UNKNOWN INDICATION
  8. LASIX 500 [Concomitant]
     Indication: DRUG USE FOR UNKNOWN INDICATION
  9. LOSEC [Concomitant]
     Indication: DRUG USE FOR UNKNOWN INDICATION
  10. INDERAL [Concomitant]
     Indication: DRUG USE FOR UNKNOWN INDICATION
  11. DUPHALAC [Concomitant]
     Indication: DRUG USE FOR UNKNOWN INDICATION

REACTIONS (1)
  - CARDIO-RESPIRATORY ARREST [None]
